FAERS Safety Report 6650300-X (Version None)
Quarter: 2010Q1

REPORT INFORMATION
  Report Type: 
  Country: None (occurrence: None)
  Receive Date: 20100325
  Receipt Date: 20100315
  Transmission Date: 20100710
  Serious: Yes (Hospitalization, Other)
  Sender: FDA-Public Use
  Company Number: PHHY2010FR15803

PATIENT
  Age: 16 Year
  Sex: Female

DRUGS (2)
  1. LAMISIL [Suspect]
     Indication: ONYCHOMYCOSIS
     Dosage: UNK
  2. LAMICTAL CD [Suspect]
     Indication: EPILEPSY

REACTIONS (9)
  - ANGINA PECTORIS [None]
  - DRUG DISPENSING ERROR [None]
  - EPIDERMOLYSIS [None]
  - LYMPHADENOPATHY [None]
  - MUCOSAL EROSION [None]
  - OROPHARYNGEAL PAIN [None]
  - PYREXIA [None]
  - RASH PAPULAR [None]
  - TOXIC EPIDERMAL NECROLYSIS [None]
